FAERS Safety Report 6897999-0 (Version None)
Quarter: 2010Q3

REPORT INFORMATION
  Report Type: 
  Country: None (occurrence: None)
  Receive Date: 20100802
  Receipt Date: 20070829
  Transmission Date: 20110219
  Serious: Yes (Other)
  Sender: FDA-Public Use
  Company Number: US-PFIZER INC-2007072498

PATIENT
  Sex: Male

DRUGS (9)
  1. LYRICA [Suspect]
     Indication: MUSCLE SPASMS
     Dates: start: 20070801, end: 20070828
  2. ALBUTEROL [Concomitant]
  3. ZITHROMAX [Concomitant]
  4. CLONIDINE [Concomitant]
  5. LEXAPRO [Concomitant]
  6. NAPROXEN [Concomitant]
  7. PHENOBARBITAL [Concomitant]
  8. SUBUTEX [Concomitant]
  9. TESSALON [Concomitant]

REACTIONS (5)
  - EAR DISORDER [None]
  - OEDEMA PERIPHERAL [None]
  - SOMNOLENCE [None]
  - SWELLING FACE [None]
  - VISION BLURRED [None]
